FAERS Safety Report 5318427-2 (Version None)
Quarter: 2007Q2

REPORT INFORMATION
  Report Type: 
  Country: None (occurrence: None)
  Receive Date: 20070501
  Receipt Date: 20070416
  Transmission Date: 20071010
  Serious: Yes (Other)
  Sender: FDA-Public Use
  Company Number: 4259

PATIENT
  Age: 18 Year
  Sex: Female
  Weight: 54.4316 kg

DRUGS (2)
  1. AMNESTEEM [Suspect]
     Indication: ACNE CYSTIC
     Dosage: 40 MG, BID, PO
     Route: 048
     Dates: start: 20070126, end: 20070306
  2. ORAL CONTRACEPTIVE NOS [Concomitant]

REACTIONS (1)
  - NO ADVERSE DRUG EFFECT [None]
